FAERS Safety Report 19272804 (Version 1)
Quarter: 2021Q2

REPORT INFORMATION
  Report Type: Spontaneous
  Country: US (occurrence: US)
  Receive Date: 20210518
  Receipt Date: 20210518
  Transmission Date: 20210717
  Serious: No
  Sender: FDA-Public Use
  Company Number: US-BEH-2021131737

PATIENT
  Sex: Female

DRUGS (3)
  1. HIZENTRA [Suspect]
     Active Substance: HUMAN IMMUNOGLOBULIN G
     Indication: HUMORAL IMMUNE DEFECT
  2. HIZENTRA [Suspect]
     Active Substance: HUMAN IMMUNOGLOBULIN G
     Indication: EPILEPSY
     Dosage: 6 GRAM, QOW
     Route: 058
     Dates: start: 20200925
  3. HIZENTRA [Suspect]
     Active Substance: HUMAN IMMUNOGLOBULIN G
     Indication: EPILEPSY

REACTIONS (5)
  - Infection [Unknown]
  - Pyrexia [Unknown]
  - Off label use [Unknown]
  - Ill-defined disorder [Unknown]
  - No adverse event [Unknown]
